FAERS Safety Report 9295247 (Version 3)
Quarter: 2013Q2

REPORT INFORMATION
  Report Type: Spontaneous
  Country: NL (occurrence: NL)
  Receive Date: 20130517
  Receipt Date: 20130617
  Transmission Date: 20140414
  Serious: Yes (Disabling)
  Sender: FDA-Public Use
  Company Number: PHHY2013NL046206

PATIENT
  Age: 65 Year
  Sex: Female
  Weight: 50 kg

DRUGS (4)
  1. TASIGNA [Suspect]
     Indication: ACUTE LYMPHOCYTIC LEUKAEMIA
     Dosage: 300 MG, BID
     Route: 048
     Dates: start: 20130413, end: 20130506
  2. DIGOXIN SANDOZ [Suspect]
     Indication: ATRIAL FIBRILLATION
     Dosage: 0.125MG EVEN DAYS, 0.250MG ODD DAYS
  3. VORICONAZOLE [Suspect]
     Indication: FUNGAL INFECTION
     Dosage: 2 DF, BID
  4. METOPROLOL [Concomitant]
     Dosage: 75 MG, BID

REACTIONS (7)
  - Pleural effusion [Recovered/Resolved]
  - Nausea [Recovered/Resolved]
  - Pericardial effusion [Recovering/Resolving]
  - Weight decreased [Recovering/Resolving]
  - Decreased appetite [Not Recovered/Not Resolved]
  - Drug level increased [Unknown]
  - Drug interaction [Unknown]
